FAERS Safety Report 9685954 (Version 1)
Quarter: 2013Q4

REPORT INFORMATION
  Report Type: Spontaneous
  Country: US (occurrence: US)
  Receive Date: 20131113
  Receipt Date: 20131113
  Transmission Date: 20140711
  Serious: No
  Sender: FDA-Public Use
  Company Number: US-ALLERGAN-1311770US

PATIENT
  Age: 36 Year
  Sex: Male

DRUGS (2)
  1. COMBIGAN[R] [Suspect]
     Indication: POSTOPERATIVE CARE
     Dosage: UNK
     Dates: start: 201307
  2. DIAMOX                             /00016901/ [Concomitant]
     Indication: PRODUCT USED FOR UNKNOWN INDICATION
     Dosage: UNK
     Dates: end: 201307

REACTIONS (2)
  - Off label use [Unknown]
  - Photophobia [Recovered/Resolved]
